FAERS Safety Report 5929266-3 (Version None)
Quarter: 2008Q4

REPORT INFORMATION
  Report Type: 
  Country: None (occurrence: None)
  Receive Date: 20081023
  Receipt Date: 20081023
  Transmission Date: 20090506
  Serious: No
  Sender: FDA-Public Use
  Company Number: None

PATIENT
  Sex: Female

DRUGS (1)
  1. DOCUSATE SODIUM 100MG LABELED GOLDLINE -NOW TEVA- [Suspect]
     Indication: CONSTIPATION
     Dosage: DOCUSATE SODIUM 100MG TWICE DAILY PO
     Route: 048
     Dates: start: 20080924, end: 20081006

REACTIONS (3)
  - NAUSEA [None]
  - PRODUCT COUNTERFEIT [None]
  - PRODUCT QUALITY ISSUE [None]
